FAERS Safety Report 22622915 (Version 1)
Quarter: 2023Q2

REPORT INFORMATION
  Report Type: Spontaneous
  Country: US (occurrence: US)
  Receive Date: 20230621
  Receipt Date: 20230621
  Transmission Date: 20230721
  Serious: No
  Sender: FDA-Public Use
  Company Number: US-SA-SAC20210715001267

PATIENT
  Age: 12 Year
  Sex: Female

DRUGS (9)
  1. DUPIXENT [Suspect]
     Active Substance: DUPILUMAB
     Indication: Dermatitis atopic
     Dosage: 300 MG, QOW
     Route: 058
     Dates: start: 20180410
  2. DUPIXENT [Suspect]
     Active Substance: DUPILUMAB
     Indication: Dermatitis allergic
  3. ADZENYS XR-ODT [Concomitant]
     Active Substance: AMPHETAMINE
  4. EPINEPHRINE [Concomitant]
     Active Substance: EPINEPHRINE
  5. MONTELUKAST [Concomitant]
     Active Substance: MONTELUKAST SODIUM
  6. ONDANSETRON [Concomitant]
     Active Substance: ONDANSETRON
  7. TRAZODONE [Concomitant]
     Active Substance: TRAZODONE HYDROCHLORIDE
  8. AMPHETAMINE [Concomitant]
     Active Substance: AMPHETAMINE
  9. DESVENLAFAXINE [Concomitant]
     Active Substance: DESVENLAFAXINE

REACTIONS (2)
  - Sleep disorder [Unknown]
  - Drug ineffective [Unknown]
